FAERS Safety Report 17600706 (Version 1)
Quarter: 2020Q1

REPORT INFORMATION
  Report Type: Spontaneous
  Country: FR (occurrence: FR)
  Receive Date: 20200330
  Receipt Date: 20200330
  Transmission Date: 20200409
  Serious: Yes (Death)
  Sender: FDA-Public Use
  Company Number: FR-CELGENEUS-FRA-20200309562

PATIENT
  Sex: Male

DRUGS (3)
  1. IDHIFA [Suspect]
     Active Substance: ENASIDENIB MESYLATE
     Indication: PRODUCT USED FOR UNKNOWN INDICATION
     Route: 048
  2. IDHIFA [Suspect]
     Active Substance: ENASIDENIB MESYLATE
     Indication: GLIOMA
  3. IDHIFA [Suspect]
     Active Substance: ENASIDENIB MESYLATE
     Indication: MYELODYSPLASTIC SYNDROME

REACTIONS (1)
  - Death [Fatal]

NARRATIVE: CASE EVENT DATE: 20200327
